FAERS Safety Report 18475043 (Version 1)
Quarter: 2020Q4

REPORT INFORMATION
  Report Type: Spontaneous
  Country: US (occurrence: US)
  Receive Date: 20201106
  Receipt Date: 20201106
  Transmission Date: 20210114
  Serious: Yes (Other)
  Sender: FDA-Public Use
  Company Number: US-ASTRAZENECA-2020SF45503

PATIENT

DRUGS (1)
  1. PRILOSEC OTC [Suspect]
     Active Substance: OMEPRAZOLE MAGNESIUM
     Indication: GASTROINTESTINAL DISORDER
     Route: 048
     Dates: start: 201701, end: 201912

REACTIONS (5)
  - Pain [Unknown]
  - Rebound effect [Unknown]
  - Acute kidney injury [Unknown]
  - Hyperchlorhydria [Unknown]
  - Drug dependence [Unknown]
